FAERS Safety Report 4263359-4 (Version None)
Quarter: 2004Q1

REPORT INFORMATION
  Report Type: 
  Country: None (occurrence: None)
  Receive Date: 20040105
  Receipt Date: 20030130
  Transmission Date: 20041129
  Serious: Yes (Other)
  Sender: FDA-Public Use
  Company Number: WAES 0301USA03199

PATIENT
  Age: 65 Year
  Sex: Male
  Weight: 89 kg

DRUGS (3)
  1. LASIX [Concomitant]
     Dates: start: 19981201, end: 20030707
  2. VIOXX [Suspect]
     Route: 048
     Dates: start: 20001201
  3. WARFARIN [Concomitant]
     Dates: start: 20000101, end: 20030707

REACTIONS (5)
  - ARTHRALGIA [None]
  - CEREBROVASCULAR ACCIDENT [None]
  - CHEST PAIN [None]
  - INJURY [None]
  - MYALGIA [None]
